FAERS Safety Report 9022173 (Version 3)
Quarter: 2013Q2

REPORT INFORMATION
  Report Type: Spontaneous
  Country: JP (occurrence: JP)
  Receive Date: 20130118
  Receipt Date: 20130619
  Transmission Date: 20140414
  Serious: Yes (Hospitalization)
  Sender: FDA-Public Use
  Company Number: JP-ASTRAZENECA-2013SE03044

PATIENT
  Age: 68 Year
  Sex: Female
  Weight: 55 kg

DRUGS (9)
  1. NEXIUM [Suspect]
     Indication: GASTROOESOPHAGEAL REFLUX DISEASE
     Route: 048
     Dates: start: 20121213, end: 20130108
  2. ARTIST [Concomitant]
     Route: 048
  3. ALLEGRA [Concomitant]
     Route: 048
     Dates: start: 20130107
  4. SELBEX [Concomitant]
     Route: 048
  5. MEVALOTIN [Concomitant]
     Route: 048
  6. NORVASC OD [Concomitant]
     Route: 048
  7. RHYTHMY [Concomitant]
     Route: 048
  8. THYRADIN S [Concomitant]
     Indication: AUTOIMMUNE THYROIDITIS
     Dosage: THYRADIN S (LEVOTHYROXINE SODIUM HYDRATE) 50 UG EVEN DAYS, AFTER BREAKFAST
     Route: 048
     Dates: start: 1997
  9. THYRADIN S [Concomitant]
     Indication: AUTOIMMUNE THYROIDITIS
     Dosage: THYRADIN S (LEVOTHYROXINE SODIUM HYDRATE) 25 UG ODD DAYS, AFTER BREAKFAST
     Route: 048
     Dates: start: 1997

REACTIONS (4)
  - Toxic skin eruption [Recovered/Resolved]
  - Anaphylactic shock [Unknown]
  - Blood pressure increased [Unknown]
  - Urticaria [Recovered/Resolved]
